FAERS Safety Report 6190044-4 (Version None)
Quarter: 2009Q2

REPORT INFORMATION
  Report Type: 
  Country: None (occurrence: None)
  Receive Date: 20090514
  Receipt Date: 20090508
  Transmission Date: 20091009
  Serious: Yes (Death, Other)
  Sender: FDA-Public Use
  Company Number: PL-GENENTECH-282669

PATIENT

DRUGS (6)
  1. MABTHERA [Suspect]
     Indication: IMMUNOSUPPRESSANT DRUG THERAPY
     Dosage: UNK
  2. FLUDARABINE PHOSPHATE [Suspect]
     Indication: IMMUNOSUPPRESSANT DRUG THERAPY
     Route: 065
  3. THALIDOMIDE [Suspect]
     Indication: IMMUNOSUPPRESSANT DRUG THERAPY
  4. NORFLOXACIN [Concomitant]
     Indication: PROPHYLAXIS
  5. CIPROFLOXACIN [Concomitant]
     Indication: PROPHYLAXIS
  6. FLUCONAZOLE [Concomitant]
     Indication: PROPHYLAXIS

REACTIONS (7)
  - ASPERGILLOSIS [None]
  - BACTERAEMIA [None]
  - CANDIDIASIS [None]
  - CARDIOTOXICITY [None]
  - ENTEROCOLITIS INFECTIOUS [None]
  - PSEUDOMONAS INFECTION [None]
  - URINARY TRACT INFECTION [None]
